FAERS Safety Report 13187012 (Version 4)
Quarter: 2024Q4

REPORT INFORMATION
  Report Type: Spontaneous
  Country: US (occurrence: US)
  Receive Date: 20170206
  Receipt Date: 20241205
  Transmission Date: 20250114
  Serious: Yes (Other)
  Sender: ROCHE
  Company Number: US-002147023-PHHY2017US014413

PATIENT
  Age: 80 Year
  Sex: Female

DRUGS (1)
  1. RANIBIZUMAB [Suspect]
     Active Substance: RANIBIZUMAB
     Indication: Neovascular age-related macular degeneration
     Route: 031

REACTIONS (10)
  - Staphylococcal infection [Recovered/Resolved]
  - Endophthalmitis [Recovered/Resolved]
  - Visual impairment [Recovering/Resolving]
  - Vitreous floaters [Unknown]
  - Retinal vasculitis [Recovered/Resolved]
  - Retinal haemorrhage [Unknown]
  - Retinal exudates [Unknown]
  - Retinal vascular disorder [Unknown]
  - Vitreous degeneration [Unknown]
  - Vitritis [Recovering/Resolving]
